FAERS Safety Report 10336756 (Version 1)
Quarter: 2014Q3

REPORT INFORMATION
  Report Type: Spontaneous
  Country: US (occurrence: US)
  Receive Date: 20140723
  Receipt Date: 20140723
  Transmission Date: 20150326
  Serious: No
  Sender: FDA-Public Use
  Company Number: US-GALDERMA-US14000408

PATIENT
  Age: 63 Year
  Sex: Female

DRUGS (12)
  1. ORACEA [Suspect]
     Active Substance: DOXYCYCLINE
     Indication: ROSACEA
     Dosage: 40 MG
     Route: 048
     Dates: start: 20131204, end: 20140104
  2. LANCOME NIGHT CREAM [Concomitant]
     Indication: DRY SKIN PROPHYLAXIS
     Route: 061
     Dates: start: 1994
  3. AVAR [Suspect]
     Active Substance: SULFACETAMIDE SODIUM\SULFUR
     Indication: THERAPEUTIC SKIN CARE TOPICAL
     Route: 061
     Dates: start: 20131203, end: 20131215
  4. LANCOME CLEANSER [Concomitant]
     Route: 061
     Dates: start: 20140115
  5. METAMUCIL (PSYLLIUM) [Concomitant]
     Route: 048
  6. VITAMIN D [Concomitant]
     Active Substance: CHOLECALCIFEROL
     Dosage: 5000 UNITS
     Route: 048
  7. LANCOME CLEANSER [Concomitant]
     Indication: THERAPEUTIC SKIN CARE TOPICAL
     Route: 061
     Dates: start: 1994, end: 20131203
  8. LANCOME MOISTURIZER WITH SPF 20 [Concomitant]
     Indication: DRY SKIN PROPHYLAXIS
     Route: 061
  9. LANCOME FOUNDATION [Concomitant]
     Indication: THERAPEUTIC SKIN CARE TOPICAL
     Route: 061
     Dates: start: 1994
  10. FINACEA [Suspect]
     Active Substance: AZELAIC ACID
     Indication: ROSACEA
     Dosage: 15%
     Route: 061
     Dates: start: 20131203
  11. FISH OIL [Concomitant]
     Active Substance: FISH OIL
     Route: 048
  12. LANCOME MOISTURIZER WITH SPF 20 [Concomitant]
     Indication: PROPHYLAXIS AGAINST SOLAR RADIATION

REACTIONS (12)
  - Swollen tongue [Unknown]
  - Eye swelling [Recovered/Resolved]
  - Middle ear effusion [Recovering/Resolving]
  - Vaginal infection [Recovering/Resolving]
  - Rash pruritic [Recovering/Resolving]
  - Paraesthesia oral [Unknown]
  - Pruritus generalised [Recovered/Resolved]
  - Tinnitus [Recovering/Resolving]
  - Lymphadenopathy [Recovered/Resolved]
  - Erythema [Recovered/Resolved]
  - Vulvovaginal pruritus [Recovering/Resolving]
  - Headache [Recovered/Resolved]

NARRATIVE: CASE EVENT DATE: 20131218
